FAERS Safety Report 16420960 (Version 1)
Quarter: 2019Q2

REPORT INFORMATION
  Report Type: Spontaneous
  Country: US (occurrence: US)
  Receive Date: 20190611
  Receipt Date: 20190611
  Transmission Date: 20190711
  Serious: Yes (Hospitalization)
  Sender: FDA-Public Use
  Company Number: None

PATIENT
  Age: 84 Year
  Sex: Male

DRUGS (3)
  1. TAMSULOSIN, SMZ/TMP, TRAZODONE [Concomitant]
  2. MIRTAZAPINE, METFORMIN, PRAVASTATIN [Concomitant]
  3. PROCRIT [Suspect]
     Active Substance: ERYTHROPOIETIN
     Indication: EMPHYSEMA
     Dosage: ?          OTHER FREQUENCY:AS DIRECTED;?
     Route: 058
     Dates: start: 20190208

REACTIONS (1)
  - Hospitalisation [None]

NARRATIVE: CASE EVENT DATE: 20190611
